FAERS Safety Report 15545569 (Version 3)
Quarter: 2018Q4

REPORT INFORMATION
  Report Type: Spontaneous
  Country: RU (occurrence: RU)
  Receive Date: 20181024
  Receipt Date: 20181203
  Transmission Date: 20190205
  Serious: Yes (Other)
  Sender: FDA-Public Use
  Company Number: RU-CELGENEUS-RUS-20181005371

PATIENT
  Age: 40 Year
  Sex: Male

DRUGS (3)
  1. OTEZLA [Suspect]
     Active Substance: APREMILAST
     Dosage: 60 MILLIGRAM
     Route: 048
     Dates: start: 20181031, end: 20181112
  2. SUPRAX [Suspect]
     Active Substance: CEFIXIME
     Indication: ACUTE SINUSITIS
     Dosage: 400 MILLIGRAM
     Route: 048
     Dates: start: 201809, end: 201809
  3. OTEZLA [Suspect]
     Active Substance: APREMILAST
     Indication: PSORIASIS
     Dosage: 60 MILLIGRAM
     Route: 048
     Dates: start: 20180806, end: 20181009

REACTIONS (4)
  - Urticaria [Recovered/Resolved]
  - Urticaria [Recovering/Resolving]
  - Acute sinusitis [Recovered/Resolved]
  - Rash pruritic [Recovered/Resolved]

NARRATIVE: CASE EVENT DATE: 201809
